FAERS Safety Report 7934333-9 (Version None)
Quarter: 2011Q4

REPORT INFORMATION
  Report Type: 
  Country: None (occurrence: None)
  Receive Date: 20111122
  Receipt Date: 20111111
  Transmission Date: 20120403
  Serious: Yes (Hospitalization)
  Sender: FDA-Public Use
  Company Number: US-GLAXOSMITHKLINE-A0871784A

PATIENT
  Age: 58 Year
  Sex: Male

DRUGS (6)
  1. GLUCOPHAGE [Concomitant]
  2. AVANDIA [Suspect]
     Indication: DIABETES MELLITUS
     Dosage: 8MG PER DAY
     Dates: start: 20030521, end: 20070801
  3. LANTUS [Concomitant]
  4. ZESTRIL [Concomitant]
  5. AMARYL [Concomitant]
  6. ZETIA [Concomitant]

REACTIONS (1)
  - CEREBROVASCULAR ACCIDENT [None]
